FAERS Safety Report 8804867 (Version 1)
Quarter: 2012Q4

REPORT INFORMATION
  Report Type: 
  Country: US (occurrence: US)
  Receive Date: 20120924
  Receipt Date: 20120924
  Transmission Date: 20130627
  Serious: Yes (Hospitalization)
  Sender: FDA-Public Use
  Company Number: US-PFIZER INC-2012235071

PATIENT
  Age: 57 Year
  Sex: Female
  Weight: 54.42 kg

DRUGS (3)
  1. CHANTIX [Suspect]
     Indication: SMOKING CESSATION THERAPY
     Dosage: 0.5 mg, 1x/day
     Route: 048
     Dates: start: 2007
  2. CHANTIX [Suspect]
     Dosage: UNK
     Route: 048
  3. CHANTIX [Suspect]
     Dosage: UNK
     Route: 048
     Dates: start: 201201, end: 2012

REACTIONS (5)
  - Lower respiratory tract infection bacterial [Recovered/Resolved]
  - Pneumonia [Recovered/Resolved]
  - Carbon dioxide increased [Recovered/Resolved]
  - Stress [Recovered/Resolved]
  - Pain [Not Recovered/Not Resolved]
